FAERS Safety Report 25807594 (Version 1)
Quarter: 2025Q3

REPORT INFORMATION
  Report Type: Spontaneous
  Country: US (occurrence: US)
  Receive Date: 20250916
  Receipt Date: 20250916
  Transmission Date: 20251020
  Serious: No
  Sender: CURIUM PHARMACEUTICALS
  Company Number: US-CURIUM-2025000561

PATIENT
  Age: 71 Year
  Sex: Female
  Weight: 79.5 kg

DRUGS (1)
  1. DETECTNET [Suspect]
     Active Substance: COPPER OXODOTREOTIDE CU-64
     Indication: Pulmonary mass
     Route: 042
     Dates: start: 20250808, end: 20250808

REACTIONS (1)
  - Radioisotope scan abnormal [Recovered/Resolved]

NARRATIVE: CASE EVENT DATE: 20250808
